FAERS Safety Report 14382483 (Version 1)
Quarter: 2018Q1

REPORT INFORMATION
  Report Type: Report from Study
  Country: BR (occurrence: BR)
  Receive Date: 20180112
  Receipt Date: 20180112
  Transmission Date: 20180509
  Serious: Yes (Other)
  Sender: FDA-Public Use
  Company Number: PHHY2017BR160895

PATIENT
  Sex: Female
  Weight: 65 kg

DRUGS (9)
  1. AFINITOR [Suspect]
     Active Substance: EVEROLIMUS
     Dosage: 10 MG, (MONDAY, WEDNESDAY AND FRIDAY)
     Route: 065
  2. AFINITOR [Suspect]
     Active Substance: EVEROLIMUS
     Dosage: 5 MG, QD (3 TIMES A WEEK)
     Route: 048
  3. AFINITOR [Suspect]
     Active Substance: EVEROLIMUS
     Indication: RENAL NEOPLASM
     Dosage: 5 MG, 4 TIMES A WEEK
     Route: 065
  4. METFORMIN [Concomitant]
     Active Substance: METFORMIN HYDROCHLORIDE
     Indication: DIABETES MELLITUS
     Route: 065
  5. PURON [Concomitant]
     Indication: PRODUCT USED FOR UNKNOWN INDICATION
     Dosage: UNK
     Route: 065
  6. AFINITOR [Suspect]
     Active Substance: EVEROLIMUS
     Dosage: 10 MG, QD (5 TIMES A WEEK)
     Route: 048
     Dates: start: 201706, end: 201711
  7. ATORVASTATIN [Concomitant]
     Active Substance: ATORVASTATIN
     Indication: HYPERCHOLESTEROLAEMIA
     Dosage: 20 MG, QD
     Route: 048
     Dates: start: 201711
  8. GALVUS [Suspect]
     Active Substance: VILDAGLIPTIN
     Indication: HYPERGLYCAEMIA
     Dosage: 1 DF, QD
     Route: 048
     Dates: start: 201711, end: 201712
  9. FOLIC ACID. [Concomitant]
     Active Substance: FOLIC ACID
     Indication: PRODUCT USED FOR UNKNOWN INDICATION
     Dosage: 1 DF, QD
     Route: 048

REACTIONS (9)
  - Eating disorder [Unknown]
  - Viral infection [Recovered/Resolved]
  - Chest pain [Recovered/Resolved]
  - Pneumonitis [Recovering/Resolving]
  - Cough [Recovered/Resolved]
  - Blood cholesterol increased [Recovered/Resolved]
  - Fatigue [Recovered/Resolved]
  - Pain [Unknown]
  - Hyperglycaemia [Unknown]
